FAERS Safety Report 22625532 (Version 1)
Quarter: 2023Q2

REPORT INFORMATION
  Report Type: Spontaneous
  Country: CN (occurrence: CN)
  Receive Date: 20230621
  Receipt Date: 20230621
  Transmission Date: 20230721
  Serious: Yes (Other)
  Sender: FDA-Public Use
  Company Number: CN-SUN PHARMACEUTICAL INDUSTRIES LTD-2023R1-395674

PATIENT
  Age: 61 Year
  Sex: Male

DRUGS (4)
  1. DOCETAXEL [Suspect]
     Active Substance: DOCETAXEL
     Indication: Chemotherapy
     Dosage: UNK
     Route: 065
  2. CISPLATIN [Suspect]
     Active Substance: CISPLATIN
     Indication: Chemotherapy
     Dosage: UNK
     Route: 065
  3. UNSPECIFIED INGREDIENT [Suspect]
     Active Substance: UNSPECIFIED INGREDIENT
     Indication: Chemotherapy
     Dosage: UNK
     Route: 065
  4. TORIPALIMAB [Suspect]
     Active Substance: TORIPALIMAB
     Indication: Chemotherapy
     Dosage: UNK
     Route: 065

REACTIONS (2)
  - Polyglandular autoimmune syndrome type II [Recovered/Resolved]
  - Crohn^s disease [Recovered/Resolved]
